FAERS Safety Report 16712502 (Version 3)
Quarter: 2019Q4

REPORT INFORMATION
  Report Type: Report from Study
  Country: US (occurrence: US)
  Receive Date: 20190816
  Receipt Date: 20191218
  Transmission Date: 20200122
  Serious: Yes (Other)
  Sender: FDA-Public Use
  Company Number: PHEH2019US033535

PATIENT
  Sex: Female

DRUGS (3)
  1. ENTRESTO [Suspect]
     Active Substance: SACUBITRIL\VALSARTAN
     Indication: CARDIAC FAILURE CHRONIC
     Dosage: 1 DF,  (97MG SACUBITRIL /103MGVALSARTAN), QD
     Route: 048
  2. ENTRESTO [Suspect]
     Active Substance: SACUBITRIL\VALSARTAN
     Dosage: 1 DF  (97MG SACUBITRIL /103MGVALSARTAN) , BID
     Route: 048
  3. ENTRESTO [Suspect]
     Active Substance: SACUBITRIL\VALSARTAN
     Dosage: 1 DF (SACUBITRIL 24 MG,VALSARTAN 26 MG), BID
     Route: 065

REACTIONS (7)
  - Colon cancer [Unknown]
  - Haemoglobin decreased [Unknown]
  - Feeling abnormal [Unknown]
  - Cough [Unknown]
  - Sneezing [Unknown]
  - Epistaxis [Unknown]
  - Inappropriate schedule of product administration [Unknown]
